FAERS Safety Report 24874469 (Version 1)
Quarter: 2025Q1

REPORT INFORMATION
  Report Type: Spontaneous
  Country: US (occurrence: US)
  Receive Date: 20250122
  Receipt Date: 20250122
  Transmission Date: 20250408
  Serious: Yes (Death)
  Sender: BIOCODEX
  Company Number: US-BIOCODEX2-2025000048

PATIENT
  Age: 2 Year
  Sex: Male
  Weight: 10.1 kg

DRUGS (1)
  1. DIACOMIT [Suspect]
     Active Substance: STIRIPENTOL
     Indication: Severe myoclonic epilepsy of infancy
     Dosage: 175MG, 150MG, AND 175MG IN THREE SEPARATE DOSES EACH DAY
     Route: 048
     Dates: start: 20231223

REACTIONS (2)
  - Death [Fatal]
  - Off label use [Unknown]

NARRATIVE: CASE EVENT DATE: 20231223
